FAERS Safety Report 10342660 (Version 1)
Quarter: 2014Q3

REPORT INFORMATION
  Report Type: Spontaneous
  Country: GB (occurrence: GB)
  Receive Date: 20140725
  Receipt Date: 20140725
  Transmission Date: 20150326
  Serious: Yes (Other)
  Sender: FDA-Public Use
  Company Number: GB-ABBVIE-14P-167-1263989-00

PATIENT
  Age: 28 Month

DRUGS (3)
  1. VALPROATE SODIUM. [Suspect]
     Active Substance: VALPROATE SODIUM
     Indication: EPILEPSY
     Route: 048
  2. VALPROATE SODIUM. [Suspect]
     Active Substance: VALPROATE SODIUM
  3. VALPROATE SODIUM. [Suspect]
     Active Substance: VALPROATE SODIUM

REACTIONS (2)
  - Medication residue present [Unknown]
  - Convulsion [Unknown]
